FAERS Safety Report 24402526 (Version 1)
Quarter: 2024Q4

REPORT INFORMATION
  Report Type: Spontaneous
  Country: BR (occurrence: BR)
  Receive Date: 20241007
  Receipt Date: 20241007
  Transmission Date: 20250115
  Serious: Yes (Hospitalization, Other)
  Sender: ROCHE
  Company Number: BR-ROCHE-10000099030

PATIENT
  Age: 59 Year
  Sex: Female

DRUGS (1)
  1. RITUXIMAB [Suspect]
     Active Substance: RITUXIMAB
     Indication: Rectal cancer
     Route: 065
     Dates: start: 2019

REACTIONS (18)
  - Myelitis [Unknown]
  - Back pain [Unknown]
  - Gait inability [Unknown]
  - Urinary incontinence [Unknown]
  - Gait disturbance [Unknown]
  - Fatigue [Unknown]
  - HIV test positive [Unknown]
  - Oesophageal candidiasis [Unknown]
  - Hiccups [Unknown]
  - Vomiting [Unknown]
  - Muscular weakness [Unknown]
  - Hypoaesthesia [Unknown]
  - Urinary incontinence [Unknown]
  - Fall [Unknown]
  - Asthenia [Recovering/Resolving]
  - Decreased appetite [Unknown]
  - Weight decreased [Unknown]
  - Off label use [Unknown]

NARRATIVE: CASE EVENT DATE: 20201201
